FAERS Safety Report 11234974 (Version 1)
Quarter: 2015Q3

REPORT INFORMATION
  Report Type: Spontaneous
  Country: US (occurrence: US)
  Receive Date: 20150702
  Receipt Date: 20150702
  Transmission Date: 20151125
  Serious: Yes (Other)
  Sender: FDA-Public Use
  Company Number: US-TEVA-574894ACC

PATIENT
  Sex: Female

DRUGS (1)
  1. PARAGARD T 380A [Suspect]
     Active Substance: COPPER
     Indication: CONTRACEPTION
     Route: 015

REACTIONS (18)
  - Laceration [Unknown]
  - Pain [Unknown]
  - Food intolerance [Unknown]
  - Loss of libido [Unknown]
  - Vaginal erosion [Unknown]
  - Amnesia [Unknown]
  - Anxiety [Unknown]
  - Weight increased [Unknown]
  - Balance disorder [Unknown]
  - Acne [Unknown]
  - Metal poisoning [Unknown]
  - Visual acuity reduced [Unknown]
  - Connective tissue disorder [Unknown]
  - Feeling abnormal [Unknown]
  - Alopecia [Unknown]
  - Hypertrichosis [Unknown]
  - Suicidal ideation [Unknown]
  - Migraine [Unknown]
